FAERS Safety Report 9284325 (Version 1)
Quarter: 2013Q2

REPORT INFORMATION
  Report Type: Spontaneous
  Country: US (occurrence: US)
  Receive Date: 20130510
  Receipt Date: 20130510
  Transmission Date: 20140414
  Serious: No
  Sender: FDA-Public Use
  Company Number: US-ASTRAZENECA-2010SE06750

PATIENT
  Age: 35 Year
  Sex: Male

DRUGS (2)
  1. NEXIUM [Suspect]
     Route: 048
  2. SEROQUEL [Suspect]
     Route: 048

REACTIONS (5)
  - Eating disorder [Unknown]
  - Weight increased [Unknown]
  - Somnolence [Unknown]
  - Intentional drug misuse [Unknown]
  - Drug ineffective [Unknown]
